FAERS Safety Report 20939119 (Version 1)
Quarter: 2022Q2

REPORT INFORMATION
  Report Type: Spontaneous
  Country: US (occurrence: None)
  Receive Date: 20220609
  Receipt Date: 20220609
  Transmission Date: 20220720
  Serious: Yes (unspecified)
  Sender: FDA-Public Use
  Company Number: None

PATIENT
  Age: 31 Year
  Sex: Male
  Weight: 115.8 kg

DRUGS (1)
  1. SUCCINYLCHOLINE [Suspect]
     Active Substance: SUCCINYLCHOLINE
     Indication: Product used for unknown indication
     Dosage: FREQUENCY : ONCE;?
     Route: 042
     Dates: start: 20220505, end: 20220505

REACTIONS (6)
  - Fall [None]
  - Hyperkalaemia [None]
  - Blood creatinine increased [None]
  - Acute respiratory failure [None]
  - Overdose [None]
  - Opiates [None]

NARRATIVE: CASE EVENT DATE: 20220505
